FAERS Safety Report 13347680 (Version 6)
Quarter: 2017Q3

REPORT INFORMATION
  Report Type: Report from Study
  Country: US (occurrence: US)
  Receive Date: 20170317
  Receipt Date: 20170707
  Transmission Date: 20171127
  Serious: Yes (Death, Hospitalization)
  Sender: FDA-Public Use
  Company Number: US-ACTELION-A-US2017-148998

PATIENT
  Age: 65 Year
  Sex: Male
  Weight: 52.15 kg

DRUGS (3)
  1. VELETRI [Suspect]
     Active Substance: EPOPROSTENOL
     Indication: PULMONARY ARTERIAL HYPERTENSION
     Dosage: 11 NG/KG, PER MIN
     Route: 042
     Dates: start: 20170117
  2. SILDENAFIL. [Concomitant]
     Active Substance: SILDENAFIL
  3. OXYGEN. [Concomitant]
     Active Substance: OXYGEN
     Dosage: 10 L, PER MIN

REACTIONS (15)
  - Device connection issue [Unknown]
  - Diarrhoea [Unknown]
  - Device alarm issue [Unknown]
  - Headache [Unknown]
  - Dyspnoea [Unknown]
  - Pneumonia [Unknown]
  - Respiratory failure [Unknown]
  - Nausea [Unknown]
  - Thrombosis in device [Unknown]
  - Disorientation [Unknown]
  - Death [Fatal]
  - Device issue [Unknown]
  - Pain in jaw [Not Recovered/Not Resolved]
  - Oxygen saturation decreased [Unknown]
  - Back pain [Unknown]

NARRATIVE: CASE EVENT DATE: 20170630
